FAERS Safety Report 7952171-8 (Version None)
Quarter: 2011Q4

REPORT INFORMATION
  Report Type: 
  Country: None (occurrence: None)
  Receive Date: 20111201
  Receipt Date: 20111128
  Transmission Date: 20120403
  Serious: Yes (Death)
  Sender: FDA-Public Use
  Company Number: PHEH2011US00963

PATIENT
  Sex: Male

DRUGS (6)
  1. LASIX [Concomitant]
     Dosage: 40 MG, DAILY
     Route: 048
  2. GLEEVEC [Suspect]
     Dosage: 200 MG, QD
     Route: 048
     Dates: start: 20100430, end: 20110601
  3. ZOCOR [Concomitant]
     Dosage: 20 MG, DAILY
  4. GLEEVEC [Suspect]
     Indication: CHRONIC MYELOID LEUKAEMIA
     Dosage: 200 MG, DAILY
     Route: 048
     Dates: start: 20080311
  5. KLOR-CON [Concomitant]
     Dosage: 20 MG, DAILY
     Route: 048
  6. ALLOPURINOL [Concomitant]
     Indication: HYPERURICAEMIA
     Dosage: 200 MG DAILY
     Route: 048

REACTIONS (1)
  - DEATH [None]
